FAERS Safety Report 8193383-0 (Version None)
Quarter: 2012Q1

REPORT INFORMATION
  Report Type: 
  Country: None (occurrence: None)
  Receive Date: 20120308
  Receipt Date: 20120228
  Transmission Date: 20120608
  Serious: Yes (Life-Threatening, Hospitalization)
  Sender: FDA-Public Use
  Company Number: JP-AMGEN-JPNCT2010011763

PATIENT
  Age: 60 Year
  Sex: Male
  Weight: 59 kg

DRUGS (6)
  1. RINDERON-V [Concomitant]
     Route: 062
     Dates: start: 20101018, end: 20101219
  2. WHITE PETROLEUM [Concomitant]
     Route: 062
     Dates: start: 20101018, end: 20101219
  3. OXINORM [Concomitant]
     Indication: CANCER PAIN
     Route: 048
     Dates: start: 20090202
  4. PANITUMUMAB [Suspect]
     Dosage: 6 MG/KG, Q2WK
     Dates: start: 20101122, end: 20101206
  5. OXYCONTIN [Concomitant]
     Indication: CANCER PAIN
     Route: 048
     Dates: start: 20090209
  6. PANITUMUMAB [Suspect]
     Indication: COLORECTAL CANCER
     Dosage: 6 MG/KG, Q2WK
     Route: 041
     Dates: start: 20101018, end: 20101018

REACTIONS (17)
  - PNEUMONIA VIRAL [None]
  - LYMPHANGIOSIS CARCINOMATOSA [None]
  - TACHYCARDIA [None]
  - PYELOCALIECTASIS [None]
  - DERMATITIS ACNEIFORM [None]
  - PNEUMONIA FUNGAL [None]
  - LYMPHADENOPATHY [None]
  - INFERIOR VENA CAVAL OCCLUSION [None]
  - PULMONARY OEDEMA [None]
  - SPLENOMEGALY [None]
  - METASTASES TO LUNG [None]
  - PNEUMONIA BACTERIAL [None]
  - URETERIC CANCER METASTATIC [None]
  - PNEUMOCYSTIS JIROVECI PNEUMONIA [None]
  - INTERSTITIAL LUNG DISEASE [None]
  - HYPOCALCAEMIA [None]
  - LUNG CONSOLIDATION [None]
